FAERS Safety Report 7206347-8 (Version None)
Quarter: 2011Q1

REPORT INFORMATION
  Report Type: 
  Country: None (occurrence: None)
  Receive Date: 20110103
  Receipt Date: 20110103
  Transmission Date: 20110831
  Serious: Yes (Hospitalization)
  Sender: FDA-Public Use
  Company Number: PHHO2008FR03173

PATIENT
  Sex: Male

DRUGS (2)
  1. SANDOSTATIN LAR [Suspect]
     Indication: CARCINOID TUMOUR
     Dosage: DOUBLE BLIND
     Route: 048
     Dates: start: 20080108
  2. AFINITOR [Suspect]
     Indication: CARCINOID TUMOUR
     Dosage: UNK
     Route: 048
     Dates: start: 20080108

REACTIONS (12)
  - LUNG DISORDER [None]
  - PYREXIA [None]
  - GENERAL PHYSICAL HEALTH DETERIORATION [None]
  - OEDEMA PERIPHERAL [None]
  - ASTHENIA [None]
  - POLLAKIURIA [None]
  - RALES [None]
  - ANAEMIA [None]
  - LUNG INFECTION [None]
  - DYSPNOEA [None]
  - HEART RATE IRREGULAR [None]
  - HYPERTHERMIA [None]
